FAERS Safety Report 7469132-8 (Version None)
Quarter: 2011Q2

REPORT INFORMATION
  Report Type: 
  Country: None (occurrence: None)
  Receive Date: 20110510
  Receipt Date: 20110426
  Transmission Date: 20111010
  Serious: Yes (Hospitalization, Other)
  Sender: FDA-Public Use
  Company Number: GB-ELI_LILLY_AND_COMPANY-GB201102002798

PATIENT
  Sex: Male
  Weight: 98 kg

DRUGS (17)
  1. HUMULIN MIX [Concomitant]
     Dosage: 44 U, BID
  2. SERETIDE [Concomitant]
     Dosage: UNK, UNKNOWN
     Route: 055
  3. ACE INHIBITORS [Concomitant]
  4. METFORMIN HCL [Concomitant]
     Dosage: 500 MG, BID
  5. ATORVASTATIN [Concomitant]
     Dosage: 20 MG, QD
  6. AMLODIPINE BESYLATE [Concomitant]
     Dosage: 10 MG, QD
  7. CYMBALTA [Suspect]
     Indication: NEURALGIA
     Dosage: 60 MG, UNKNOWN
     Route: 048
     Dates: start: 20101216
  8. HUMULIN MIX [Concomitant]
     Dosage: 56 U, BID
  9. HUMULIN MIX [Concomitant]
     Dosage: UNK, UNKNOWN
  10. ASPIRIN [Concomitant]
     Dosage: 75 MG, QD
  11. LISINOPRIL [Concomitant]
     Dosage: 20 MG, QD
  12. DOXAZOSIN MESYLATE [Concomitant]
     Indication: HYPERTENSION
     Dosage: UNK, UNKNOWN
  13. OMEPRAZOLE [Concomitant]
     Dosage: 20 MG, QD
  14. HUMULIN MIX [Concomitant]
     Dosage: 60 U, UNKNOWN
  15. DOXAZOSIN MESYLATE [Concomitant]
     Dosage: 12 MG, QD
  16. BENDROFLUAZIDE [Concomitant]
     Indication: HYPERTENSION
     Dosage: UNK, UNKNOWN
  17. ALBUTEROL SULFATE AUTOHALER [Concomitant]
     Dosage: UNK, UNKNOWN
     Route: 055

REACTIONS (3)
  - OBSTRUCTIVE UROPATHY [None]
  - HYPOGLYCAEMIA [None]
  - RENAL FAILURE ACUTE [None]
